FAERS Safety Report 6761582-8 (Version None)
Quarter: 2010Q2

REPORT INFORMATION
  Report Type: 
  Country: None (occurrence: None)
  Receive Date: 20100609
  Receipt Date: 20100602
  Transmission Date: 20101027
  Serious: No
  Sender: FDA-Public Use
  Company Number: US-BIOGENIDEC-2010BI013356

PATIENT
  Sex: Female

DRUGS (2)
  1. TYSABRI [Suspect]
     Indication: MULTIPLE SCLEROSIS
     Route: 042
     Dates: start: 20100202
  2. AVONEX [Concomitant]
     Indication: MULTIPLE SCLEROSIS
     Route: 030
     Dates: start: 20090901

REACTIONS (10)
  - CHILLS [None]
  - DEPRESSION [None]
  - DIARRHOEA [None]
  - FEELING COLD [None]
  - FLUSHING [None]
  - NAUSEA [None]
  - PAIN [None]
  - PRURITUS [None]
  - PYREXIA [None]
  - URTICARIA [None]
